FAERS Safety Report 4675047-0 (Version None)
Quarter: 2005Q2

REPORT INFORMATION
  Report Type: 
  Country: None (occurrence: None)
  Receive Date: 20050525
  Receipt Date: 20050517
  Transmission Date: 20051028
  Serious: Yes (Death)
  Sender: FDA-Public Use
  Company Number: US-2005-006577

PATIENT
  Age: 70 Year
  Sex: Female

DRUGS (1)
  1. BETASERON [Suspect]
     Indication: MULTIPLE SCLEROSIS
     Dosage: SUBCUTANEOUS
     Route: 058
     Dates: start: 19960622, end: 20021001

REACTIONS (3)
  - BLADDER CANCER [None]
  - PROGRESSIVE MULTIPLE SCLEROSIS [None]
  - RESPIRATORY FAILURE [None]
